FAERS Safety Report 6643570-5 (Version None)
Quarter: 2010Q1

REPORT INFORMATION
  Report Type: 
  Country: None (occurrence: None)
  Receive Date: 20100320
  Receipt Date: 20100310
  Transmission Date: 20100710
  Serious: Yes (Other)
  Sender: FDA-Public Use
  Company Number: US-B.I. PHARMACEUTICALS,INC./RIDGEFIELD-2010-BP-03201BP

PATIENT
  Age: 55 Year
  Sex: Female

DRUGS (2)
  1. VIRAMUNE [Suspect]
     Indication: HIV TEST POSITIVE
  2. TRUVADA [Concomitant]
     Indication: HIV TEST POSITIVE

REACTIONS (3)
  - RENAL FAILURE [None]
  - T-LYMPHOCYTE COUNT [None]
  - VIRAL LOAD [None]
